FAERS Safety Report 7107181-X (Version None)
Quarter: 2010Q4

REPORT INFORMATION
  Report Type: 
  Country: None (occurrence: None)
  Receive Date: 20101116
  Receipt Date: 20101018
  Transmission Date: 20110411
  Serious: No
  Sender: FDA-Public Use
  Company Number: US-ABBOTT-10P-163-0679274-00

PATIENT
  Sex: Male
  Weight: 72.64 kg

DRUGS (2)
  1. SIMCOR [Suspect]
     Indication: BLOOD CHOLESTEROL INCREASED
     Dosage: 500/20 MG DAILY
     Dates: start: 20101005, end: 20101017
  2. LISINOPRIL [Concomitant]
     Indication: HYPERTENSION
     Dates: start: 20090101

REACTIONS (2)
  - FLUSHING [None]
  - LOSS OF CONSCIOUSNESS [None]
